FAERS Safety Report 10703568 (Version 2)
Quarter: 2015Q1

REPORT INFORMATION
  Report Type: Spontaneous
  Country: FR (occurrence: FR)
  Receive Date: 20150112
  Receipt Date: 20150203
  Transmission Date: 20150721
  Serious: Yes (Life-Threatening, Hospitalization)
  Sender: FDA-Public Use
  Company Number: PHHY2015FR002263

PATIENT
  Age: 4 Year
  Sex: Female
  Weight: 18 kg

DRUGS (2)
  1. ILARIS [Suspect]
     Active Substance: CANAKINUMAB
     Dosage: 4 MG/KG, LAST INJECTION
     Route: 058
     Dates: start: 20141204
  2. ILARIS [Suspect]
     Active Substance: CANAKINUMAB
     Indication: MUCKLE-WELLS SYNDROME
     Dosage: 2 MG/KG, EVERY OTHER MONTH
     Route: 058
     Dates: start: 20110525

REACTIONS (8)
  - Streptococcal infection [Recovered/Resolved]
  - Mutism [Recovered/Resolved]
  - Pneumothorax [Recovered/Resolved]
  - Abnormal behaviour [Recovered/Resolved]
  - Lung disorder [Recovered/Resolved]
  - Bacterial infection [Recovering/Resolving]
  - Pyrexia [Recovered/Resolved]
  - Electroencephalogram abnormal [Recovered/Resolved]

NARRATIVE: CASE EVENT DATE: 20141219
